FAERS Safety Report 4541122-4 (Version None)
Quarter: 2004Q4

REPORT INFORMATION
  Report Type: 
  Country: None (occurrence: None)
  Receive Date: 20041228
  Receipt Date: 20041217
  Transmission Date: 20050328
  Serious: Yes (Hospitalization)
  Sender: FDA-Public Use
  Company Number: BDI-006770

PATIENT
  Age: 80 Year
  Sex: Male

DRUGS (2)
  1. GADOTERIDOL / PROHANCE (BATCH # (S) : 4G58134) [Suspect]
     Indication: RENAL ARTERY STENOSIS
     Dosage: 40 ML, IV
     Route: 042
     Dates: start: 20041217, end: 20041217
  2. GADOTERIDOL / PROHANCE (BATCH # (S) : 4G58134) [Suspect]
     Indication: RENAL DISORDER
     Dosage: 40 ML, IV
     Route: 042
     Dates: start: 20041217, end: 20041217

REACTIONS (4)
  - ANAPHYLACTIC REACTION [None]
  - CARDIO-RESPIRATORY ARREST [None]
  - COMA [None]
  - MYOCARDIAL INFARCTION [None]
